FAERS Safety Report 13286419 (Version 2)
Quarter: 2017Q1

REPORT INFORMATION
  Report Type: Report from Study
  Country: US (occurrence: US)
  Receive Date: 20170302
  Receipt Date: 20170309
  Transmission Date: 20170428
  Serious: Yes (Other)
  Sender: FDA-Public Use
  Company Number: US-AMGEN-USASP2017028640

PATIENT
  Sex: Male
  Weight: 3.58 kg

DRUGS (1)
  1. ENBREL [Suspect]
     Active Substance: ETANERCEPT
     Indication: EXPOSURE DURING PREGNANCY
     Dosage: 50 MG, QWK
     Route: 064
     Dates: start: 2012, end: 20140601

REACTIONS (6)
  - Nasopharyngitis [Unknown]
  - Coxsackie viral infection [Unknown]
  - Staphylococcal infection [Not Recovered/Not Resolved]
  - Jaundice neonatal [Recovered/Resolved]
  - Weight decreased [Unknown]
  - Influenza [Unknown]
